FAERS Safety Report 13461694 (Version 1)
Quarter: 2017Q2

REPORT INFORMATION
  Report Type: Spontaneous
  Country: US (occurrence: US)
  Receive Date: 20170419
  Receipt Date: 20170419
  Transmission Date: 20170830
  Serious: No
  Sender: FDA-Public Use
  Company Number: None

PATIENT
  Age: 70 Year
  Sex: Female

DRUGS (16)
  1. GLIPIZIDE. [Concomitant]
     Active Substance: GLIPIZIDE
  2. FUROSEMIDE. [Concomitant]
     Active Substance: FUROSEMIDE
  3. GLIPIZIDE. [Concomitant]
     Active Substance: GLIPIZIDE
  4. OMEGA-3S-DHA-EPA-FISH OIL [Concomitant]
  5. METFORMIN [Concomitant]
     Active Substance: METFORMIN HYDROCHLORIDE
  6. OPSUMIT [Suspect]
     Active Substance: MACITENTAN
     Indication: PULMONARY ARTERIAL HYPERTENSION
     Route: 048
     Dates: start: 201612, end: 201703
  7. SILDENAFIL. [Concomitant]
     Active Substance: SILDENAFIL
  8. VENTOLIN HFA [Concomitant]
     Active Substance: ALBUTEROL SULFATE
  9. ASPIRIN. [Concomitant]
     Active Substance: ASPIRIN
  10. CETIRIZINE [Concomitant]
     Active Substance: CETIRIZINE HYDROCHLORIDE
  11. HUMULIN N INSULIN [Concomitant]
  12. AMLODIPINE [Concomitant]
     Active Substance: AMLODIPINE BESYLATE
  13. LOVASTATIN. [Concomitant]
     Active Substance: LOVASTATIN
  14. LISINOPRIL. [Concomitant]
     Active Substance: LISINOPRIL
  15. CALTRATE 600+D PLUS MINERALS [Concomitant]
  16. MULTIVITAMIN-MINERALS [Concomitant]

REACTIONS (1)
  - Therapy non-responder [None]

NARRATIVE: CASE EVENT DATE: 20170318
